FAERS Safety Report 13103900 (Version 4)
Quarter: 2020Q2

REPORT INFORMATION
  Report Type: Spontaneous
  Country: CA (occurrence: CA)
  Receive Date: 20170111
  Receipt Date: 20200506
  Transmission Date: 20200713
  Serious: Yes (Life-Threatening, Hospitalization)
  Sender: FDA-Public Use
  Company Number: CA-ROCHE-1877181

PATIENT
  Age: 37 Year
  Sex: Female

DRUGS (17)
  1. ENBREL [Suspect]
     Active Substance: ETANERCEPT
     Indication: PRODUCT USED FOR UNKNOWN INDICATION
     Route: 065
  2. HUMIRA [Suspect]
     Active Substance: ADALIMUMAB
     Indication: PRODUCT USED FOR UNKNOWN INDICATION
     Route: 058
  3. AMLODIPINE BESILATE [Concomitant]
     Active Substance: AMLODIPINE BESYLATE
     Route: 065
  4. ACTEMRA [Suspect]
     Active Substance: TOCILIZUMAB
     Indication: RHEUMATOID ARTHRITIS
     Route: 058
  5. CIMZIA [Suspect]
     Active Substance: CERTOLIZUMAB PEGOL
     Indication: PRODUCT USED FOR UNKNOWN INDICATION
     Route: 058
  6. CELEBREX [Concomitant]
     Active Substance: CELECOXIB
  7. HUMIRA [Suspect]
     Active Substance: ADALIMUMAB
     Route: 058
  8. VENLAFAXINE HYDROCHLORIDE. [Concomitant]
     Active Substance: VENLAFAXINE HYDROCHLORIDE
  9. ARAVA [Concomitant]
     Active Substance: LEFLUNOMIDE
     Route: 048
  10. METHOTREXATE. [Concomitant]
     Active Substance: METHOTREXATE
  11. ATIVAN [Concomitant]
     Active Substance: LORAZEPAM
  12. PREDNISONE. [Concomitant]
     Active Substance: PREDNISONE
  13. RAMIPRIL. [Concomitant]
     Active Substance: RAMIPRIL
  14. RANITIDINE. [Concomitant]
     Active Substance: RANITIDINE
  15. NORTRIPTYLINE [Concomitant]
     Active Substance: NORTRIPTYLINE
     Route: 065
  16. OXYCOCET [Concomitant]
     Active Substance: ACETAMINOPHEN\OXYCODONE HYDROCHLORIDE
  17. VITAMIN D3 [Concomitant]
     Active Substance: CHOLECALCIFEROL
     Route: 065

REACTIONS (9)
  - Weight increased [Recovering/Resolving]
  - Pain [Unknown]
  - Therapeutic product effect decreased [Unknown]
  - Depression [Recovering/Resolving]
  - Nausea [Recovering/Resolving]
  - Myocardial infarction [Recovering/Resolving]
  - Pruritus [Recovering/Resolving]
  - Injection related reaction [Unknown]
  - Drug ineffective [Unknown]
